FAERS Safety Report 8058422-6 (Version None)
Quarter: 2012Q1

REPORT INFORMATION
  Report Type: 
  Country: None (occurrence: None)
  Receive Date: 20120119
  Receipt Date: 20120119
  Transmission Date: 20120608
  Serious: Yes (Life-Threatening, Hospitalization, Other)
  Sender: FDA-Public Use
  Company Number: None

PATIENT
  Sex: Female
  Weight: 48.9885 kg

DRUGS (1)
  1. CYMBALTA [Suspect]
     Indication: DEPRESSION
     Dosage: 30 MG TO 60 MG IF 2X/DAY 1 TO 2 TIME/DAY CAP BY MOUTH
     Route: 048

REACTIONS (22)
  - VISION BLURRED [None]
  - INSOMNIA [None]
  - DIARRHOEA [None]
  - DEHYDRATION [None]
  - WALKING AID USER [None]
  - IRRITABILITY [None]
  - DEPRESSION [None]
  - CONDITION AGGRAVATED [None]
  - BACK INJURY [None]
  - JAW FRACTURE [None]
  - DRY MOUTH [None]
  - FATIGUE [None]
  - PALPITATIONS [None]
  - ANXIETY [None]
  - DRY EYE [None]
  - MENTAL DISORDER [None]
  - DIZZINESS [None]
  - CONSTIPATION [None]
  - DECREASED APPETITE [None]
  - TREMOR [None]
  - MYALGIA [None]
  - FALL [None]
